FAERS Safety Report 7528915-6 (Version None)
Quarter: 2011Q2

REPORT INFORMATION
  Report Type: 
  Country: None (occurrence: None)
  Receive Date: 20110607
  Receipt Date: 20110525
  Transmission Date: 20111010
  Serious: Yes (Hospitalization)
  Sender: FDA-Public Use
  Company Number: PHFR2011GB03184

PATIENT
  Sex: Female

DRUGS (3)
  1. CLOZARIL [Suspect]
     Indication: SCHIZOPHRENIA
     Route: 048
     Dates: start: 20110419
  2. CLOZARIL [Suspect]
     Dosage: UNK
     Route: 048
     Dates: start: 20110520
  3. CLOZARIL [Suspect]
     Dosage: 300 MG
     Route: 048

REACTIONS (5)
  - OVERDOSE [None]
  - NEUTROPHIL COUNT DECREASED [None]
  - GAIT DISTURBANCE [None]
  - SOMNOLENCE [None]
  - PLATELET COUNT DECREASED [None]
